FAERS Safety Report 8175169-6 (Version None)
Quarter: 2012Q1

REPORT INFORMATION
  Report Type: 
  Country: None (occurrence: None)
  Receive Date: 20120229
  Receipt Date: 20120227
  Transmission Date: 20120608
  Serious: Yes (Death)
  Sender: FDA-Public Use
  Company Number: PHFR2011GB02344

PATIENT
  Sex: Male
  Weight: 69.8 kg

DRUGS (4)
  1. CLOZARIL [Suspect]
     Indication: SCHIZOPHRENIA
     Dosage: 600 MG NOCTE
     Route: 048
     Dates: start: 20010424
  2. LANSOPRAZOLE [Concomitant]
     Dosage: 15 MG, QD
     Route: 048
  3. AMISULPRIDE [Suspect]
     Indication: SCHIZOPHRENIA
     Dosage: 100 MG, BID
     Route: 048
  4. CLOZARIL [Suspect]
     Dosage: UNK DF, UNK
     Route: 048
     Dates: start: 20061102

REACTIONS (4)
  - LEFT VENTRICULAR FAILURE [None]
  - FEELING COLD [None]
  - RESPIRATORY ARREST [None]
  - MYOCARDIAL INFARCTION [None]
